FAERS Safety Report 10843181 (Version 1)
Quarter: 2015Q1

REPORT INFORMATION
  Report Type: Report from Study
  Country: US (occurrence: US)
  Receive Date: 20150220
  Receipt Date: 20150220
  Transmission Date: 20150721
  Serious: No
  Sender: FDA-Public Use
  Company Number: US-ABBVIE-14P-163-1288021-00

PATIENT
  Age: 36 Year
  Sex: Male

DRUGS (1)
  1. HUMIRA [Suspect]
     Active Substance: ADALIMUMAB
     Indication: PSORIASIS
     Route: 065
     Dates: start: 20140206

REACTIONS (8)
  - Wheezing [Recovered/Resolved]
  - Rhinorrhoea [Recovered/Resolved]
  - Mucosal discolouration [Recovering/Resolving]
  - Injection site bruising [Recovered/Resolved]
  - Oropharyngeal pain [Recovered/Resolved]
  - Nasopharyngitis [Recovering/Resolving]
  - Productive cough [Recovering/Resolving]
  - Injection site discolouration [Recovered/Resolved]

NARRATIVE: CASE EVENT DATE: 2014
